FAERS Safety Report 15442292 (Version 1)
Quarter: 2018Q3

REPORT INFORMATION
  Report Type: Spontaneous
  Country: HR (occurrence: HR)
  Receive Date: 20180928
  Receipt Date: 20180928
  Transmission Date: 20181010
  Serious: Yes (Life-Threatening, Other)
  Sender: FDA-Public Use
  Company Number: HR-ASTRAZENECA-2018SF24361

PATIENT
  Age: 65 Year
  Sex: Female

DRUGS (1)
  1. IRESSA [Suspect]
     Active Substance: GEFITINIB
     Indication: LUNG ADENOCARCINOMA
     Route: 048

REACTIONS (9)
  - Dyspnoea [Unknown]
  - Cough [Unknown]
  - Weight decreased [Unknown]
  - Metastases to lung [Unknown]
  - Weight increased [Unknown]
  - Pulmonary haemorrhage [Unknown]
  - Cardio-respiratory arrest [Unknown]
  - Myocardial infarction [Unknown]
  - Ventricular fibrillation [Unknown]
